FAERS Safety Report 8731806 (Version 2)
Quarter: 2012Q4

REPORT INFORMATION
  Report Type: 
  Country: GB (occurrence: GB)
  Receive Date: 20120820
  Receipt Date: 20120828
  Transmission Date: 20130627
  Serious: Yes (Death)
  Sender: FDA-Public Use
  Company Number: GB-CUBIST-2012S1000673

PATIENT
  Age: 61 Year
  Sex: Male

DRUGS (6)
  1. CUBICIN [Suspect]
     Indication: TREATMENT FAILURE
  2. CUBICIN [Suspect]
     Indication: STAPHYLOCOCCAL INFECTION
  3. FLUCLOXACILLIN [Concomitant]
     Indication: PRODUCT USED FOR UNKNOWN INDICATION
  4. GENTAMICIN [Concomitant]
     Indication: PRODUCT USED FOR UNKNOWN INDICATION
  5. RIFAMPICIN [Concomitant]
     Indication: PRODUCT USED FOR UNKNOWN INDICATION
  6. LINEZOLID [Concomitant]
     Indication: PRODUCT USED FOR UNKNOWN INDICATION

REACTIONS (1)
  - Death [Not Recovered/Not Resolved]
